FAERS Safety Report 8808635 (Version 1)
Quarter: 2012Q4

REPORT INFORMATION
  Report Type: 
  Country: HR (occurrence: HR)
  Receive Date: 20120926
  Receipt Date: 20120926
  Transmission Date: 20130627
  Serious: Yes (Hospitalization, Other)
  Sender: FDA-Public Use
  Company Number: HR-JNJFOC-20120907575

PATIENT
  Age: 56 Year
  Sex: Male

DRUGS (3)
  1. RISPOLEPT CONSTA [Suspect]
     Indication: SCHIZOPHRENIA
     Route: 030
     Dates: start: 2012
  2. RISPOLEPT CONSTA [Suspect]
     Indication: SCHIZOPHRENIA
     Route: 030
     Dates: start: 2010, end: 2012
  3. RISPERIDONE [Suspect]
     Indication: SCHIZOPHRENIA
     Dosage: for 3 months
     Route: 048
     Dates: start: 2010

REACTIONS (2)
  - Pituitary tumour benign [Unknown]
  - Schizophrenia [Recovered/Resolved]
